FAERS Safety Report 17223211 (Version 2)
Quarter: 2020Q1

REPORT INFORMATION
  Report Type: Spontaneous
  Country: GB (occurrence: GB)
  Receive Date: 20200102
  Receipt Date: 20200127
  Transmission Date: 20200409
  Serious: Yes (Disabling)
  Sender: FDA-Public Use
  Company Number: GB-TEVA-2019-GB-1159447

PATIENT
  Age: 67 Year
  Sex: Female

DRUGS (3)
  1. TRAMADOL. [Concomitant]
     Active Substance: TRAMADOL
  2. ROSUVASTATIN. [Suspect]
     Active Substance: ROSUVASTATIN
     Indication: BLOOD CHOLESTEROL INCREASED
     Dosage: 5MG TWICE A WEEK FOR 2 WEEKS THEN 5MG ONCE A WEEK FOR ONE WEEK
     Route: 048
     Dates: start: 201910, end: 20191101
  3. ROSUVASTATIN. [Suspect]
     Active Substance: ROSUVASTATIN
     Dosage: 5MG TWICE A WEEK FOR 2 WEEKS THEN 5MG ONCE A WEEK FOR ONE WEEK
     Route: 048
     Dates: start: 20191015

REACTIONS (1)
  - Muscle spasms [Not Recovered/Not Resolved]

NARRATIVE: CASE EVENT DATE: 20191026
